FAERS Safety Report 7425164-7 (Version None)
Quarter: 2011Q2

REPORT INFORMATION
  Report Type: 
  Country: None (occurrence: None)
  Receive Date: 20110412
  Receipt Date: 20110330
  Transmission Date: 20111010
  Serious: Yes (Other)
  Sender: FDA-Public Use
  Company Number: 1000017650

PATIENT
  Age: 49 Year
  Sex: Female

DRUGS (4)
  1. VIAGRA [Suspect]
  2. CELEXA [Suspect]
     Indication: DEPRESSION
     Dosage: 10 MG (10 MG,1 IN 1 D)
  3. EFFEXOR XR [Suspect]
     Indication: DEPRESSION
     Dosage: (150 MG)
  4. EFFEXOR XR [Suspect]

REACTIONS (3)
  - HALLUCINATION, TACTILE [None]
  - ANORGASMIA [None]
  - VISUAL IMPAIRMENT [None]
